FAERS Safety Report 8924798 (Version 1)
Quarter: 2012Q4

REPORT INFORMATION
  Report Type: 
  Country: JP (occurrence: JP)
  Receive Date: 20121126
  Receipt Date: 20121126
  Transmission Date: 20130627
  Serious: Yes (Hospitalization)
  Sender: FDA-Public Use
  Company Number: JP-ROCHE-930900191001

PATIENT
  Age: 57 Year
  Sex: Female

DRUGS (7)
  1. ROCEPHIN [Suspect]
     Indication: OTITIS MEDIA
     Route: 042
     Dates: start: 19930305, end: 19930312
  2. POLARAMINE [Concomitant]
     Indication: PRURITUS
     Route: 048
     Dates: start: 19930309, end: 19930325
  3. ZADITEN [Concomitant]
     Indication: PRURITUS
     Route: 048
     Dates: start: 19930316, end: 19930325
  4. MERISLON [Concomitant]
     Indication: VERTIGO
     Route: 048
     Dates: start: 19921007, end: 19930325
  5. HEXTOL [Concomitant]
     Indication: CEREBRAL HAEMORRHAGE
     Route: 048
     Dates: start: 19891027, end: 19930325
  6. SENNA [Concomitant]
     Indication: CONSTIPATION
     Route: 048
     Dates: start: 19891027, end: 19930325
  7. ASPIRIN [Concomitant]
     Route: 048
     Dates: start: 19921007, end: 19930325

REACTIONS (5)
  - Jaundice [Recovered/Resolved]
  - Rash [Recovering/Resolving]
  - Pruritus [Recovered/Resolved]
  - Hepatic enzyme increased [Recovered/Resolved]
  - Blood bilirubin increased [Unknown]
